FAERS Safety Report 5944129-5 (Version None)
Quarter: 2008Q4

REPORT INFORMATION
  Report Type: 
  Country: None (occurrence: None)
  Receive Date: 20081104
  Receipt Date: 20081023
  Transmission Date: 20090506
  Serious: Yes (Hospitalization)
  Sender: FDA-Public Use
  Company Number: 2008BI025419

PATIENT
  Age: 58 Year
  Sex: Female

DRUGS (17)
  1. AVONEX [Suspect]
     Indication: MULTIPLE SCLEROSIS
     Dosage: UG;QW; IM
     Route: 030
     Dates: start: 20031201
  2. LORTAB [Concomitant]
  3. PREMARIN [Concomitant]
  4. ADVAIR DISKUS 100/50 [Concomitant]
  5. LESCOL [Concomitant]
  6. NEURONTIN [Concomitant]
  7. SINGULAIR [Concomitant]
  8. THEOPHYLLINE [Concomitant]
  9. AMBIEN [Concomitant]
  10. PRILOSEC [Concomitant]
  11. ZANTAC [Concomitant]
  12. METHYLPREDNISOLONE 16MG TAB [Concomitant]
  13. FLEXERIL [Concomitant]
  14. BENADRYL [Concomitant]
  15. FOSAMAX [Concomitant]
  16. VITAMIN B1 TAB [Concomitant]
  17. PREV MEDS [Concomitant]

REACTIONS (11)
  - ABDOMINAL DISCOMFORT [None]
  - ABDOMINAL DISTENSION [None]
  - ASTHMA [None]
  - BRONCHITIS [None]
  - BRONCHOSPASM [None]
  - CHRONIC OBSTRUCTIVE PULMONARY DISEASE [None]
  - CONDITION AGGRAVATED [None]
  - INTERSTITIAL LUNG DISEASE [None]
  - NAUSEA [None]
  - PAIN [None]
  - VOMITING [None]
